FAERS Safety Report 14741679 (Version 1)
Quarter: 2018Q2

REPORT INFORMATION
  Report Type: Report from Study
  Country: US (occurrence: US)
  Receive Date: 20180410
  Receipt Date: 20180410
  Transmission Date: 20180711
  Serious: Yes (Death)
  Sender: FDA-Public Use
  Company Number: US-EXELIXIS-CABO-18013373

PATIENT
  Age: 57 Year
  Sex: Male

DRUGS (3)
  1. OYSCO 500+D [Concomitant]
  2. DULOXETINE. [Concomitant]
     Active Substance: DULOXETINE
  3. CABOMETYX [Suspect]
     Active Substance: CABOZANTINIB S-MALATE
     Indication: RENAL CANCER
     Dosage: 60 MG, QD
     Route: 048
     Dates: start: 20170421

REACTIONS (1)
  - Death [Fatal]

NARRATIVE: CASE EVENT DATE: 20180327
